FAERS Safety Report 15739810 (Version 1)
Quarter: 2018Q4

REPORT INFORMATION
  Report Type: Spontaneous
  Country: US (occurrence: US)
  Receive Date: 20181219
  Receipt Date: 20181219
  Transmission Date: 20190205
  Serious: Yes (Death, Hospitalization)
  Sender: FDA-Public Use
  Company Number: US-PFIZER INC-2018518874

PATIENT
  Age: 40 Year
  Sex: Female

DRUGS (1)
  1. MAGNESIUM SULFATE. [Suspect]
     Active Substance: MAGNESIUM SULFATE
     Indication: WEIGHT DECREASED
     Dosage: UNK

REACTIONS (4)
  - Accidental overdose [Fatal]
  - Cardiac arrest [Fatal]
  - Hypermagnesaemia [Fatal]
  - Brain injury [Fatal]

NARRATIVE: CASE EVENT DATE: 201708
